FAERS Safety Report 5671981-3 (Version None)
Quarter: 2008Q2

REPORT INFORMATION
  Report Type: 
  Country: None (occurrence: None)
  Receive Date: 20080219
  Receipt Date: 20080102
  Transmission Date: 20081010
  Serious: No
  Sender: FDA-Public Use
  Company Number: TPA2007A02135

PATIENT

DRUGS (1)
  1. ROZEREM [Suspect]
     Dosage: ONCE, PER ORAL
     Route: 048

REACTIONS (2)
  - FATIGUE [None]
  - FEELING ABNORMAL [None]
